FAERS Safety Report 9716609 (Version 2)
Quarter: 2013Q4

REPORT INFORMATION
  Report Type: Spontaneous
  Country: US (occurrence: US)
  Receive Date: 20131127
  Receipt Date: 20131220
  Transmission Date: 20140711
  Serious: No
  Sender: FDA-Public Use
  Company Number: US-PFIZER INC-2013336520

PATIENT
  Age: 47 Year
  Sex: Female

DRUGS (4)
  1. SULFASALAZINE [Suspect]
     Dosage: UNK
  2. SULFASALAZINE [Suspect]
     Dosage: UNK
  3. SPIRONOLACTONE [Concomitant]
     Dosage: UNK
  4. PREVACID [Concomitant]
     Dosage: UNK

REACTIONS (2)
  - Discomfort [Unknown]
  - Product odour abnormal [Unknown]
